FAERS Safety Report 7927776-0 (Version None)
Quarter: 2011Q4

REPORT INFORMATION
  Report Type: 
  Country: None (occurrence: None)
  Receive Date: 20111118
  Receipt Date: 20111116
  Transmission Date: 20120403
  Serious: Yes (Death, Hospitalization)
  Sender: FDA-Public Use
  Company Number: BR-ABBOTT-11P-020-0873814-00

PATIENT
  Sex: Female
  Weight: 62 kg

DRUGS (7)
  1. METFORMIN HCL [Concomitant]
     Indication: PRODUCT USED FOR UNKNOWN INDICATION
  2. HUMIRA [Suspect]
     Indication: RHEUMATOID ARTHRITIS
     Dates: start: 20081008
  3. UNSPECIFIED DRUG [Concomitant]
     Indication: CARDIAC PACEMAKER INSERTION
  4. AZATHIOPRINE [Concomitant]
     Indication: PRODUCT USED FOR UNKNOWN INDICATION
  5. UNSPECIFIED DRUG [Concomitant]
     Indication: DIABETES MELLITUS
  6. UNSPECIFIED DRUG [Concomitant]
     Indication: BLOOD CHOLESTEROL INCREASED
  7. UNSPECIFIED DRUG [Concomitant]
     Indication: MUSCULOSKELETAL PAIN

REACTIONS (3)
  - ARRHYTHMIA [None]
  - DECREASED APPETITE [None]
  - CARDIOPULMONARY FAILURE [None]
